FAERS Safety Report 7119881-6 (Version None)
Quarter: 2010Q4

REPORT INFORMATION
  Report Type: 
  Country: None (occurrence: None)
  Receive Date: 20101123
  Receipt Date: 20100923
  Transmission Date: 20110411
  Serious: No
  Sender: FDA-Public Use
  Company Number: US-BRISTOL-MYERS SQUIBB COMPANY-15301559

PATIENT
  Age: 64 Year
  Sex: Female

DRUGS (5)
  1. ONGLYZA [Suspect]
     Dates: start: 20100623, end: 20100101
  2. METFORMIN HCL [Concomitant]
  3. ACTOS [Concomitant]
  4. QUINAPRIL HCL [Concomitant]
  5. FLUOROURACIL [Concomitant]
     Dosage: CREAM

REACTIONS (1)
  - VOMITING [None]
